FAERS Safety Report 6213229-7 (Version None)
Quarter: 2009Q2

REPORT INFORMATION
  Report Type: 
  Country: None (occurrence: None)
  Receive Date: 20090601
  Receipt Date: 20090601
  Transmission Date: 20091009
  Serious: Yes (Other)
  Sender: FDA-Public Use
  Company Number: None

PATIENT
  Age: 49 Year
  Sex: Female
  Weight: 122.4712 kg

DRUGS (1)
  1. CRESTOR [Suspect]
     Indication: BLOOD CHOLESTEROL INCREASED
     Dosage: 20MG 1/DAY PO
     Route: 048
     Dates: start: 20090313, end: 20090314

REACTIONS (3)
  - MOVEMENT DISORDER [None]
  - MUSCULAR WEAKNESS [None]
  - MYALGIA [None]
